APPROVED DRUG PRODUCT: COLGATE TOTAL
Active Ingredient: SODIUM FLUORIDE; TRICLOSAN
Strength: 0.24%;0.3%
Dosage Form/Route: PASTE;DENTAL
Application: N020231 | Product #001
Applicant: COLGATE PALMOLIVE
Approved: Jul 11, 1997 | RLD: Yes | RS: No | Type: DISCN